FAERS Safety Report 5126802-4 (Version None)
Quarter: 2006Q4

REPORT INFORMATION
  Report Type: 
  Country: None (occurrence: None)
  Receive Date: 20061010
  Receipt Date: 20060801
  Transmission Date: 20070319
  Serious: Yes (Other)
  Sender: FDA-Public Use
  Company Number: 2006052205

PATIENT
  Age: 85 Year
  Sex: Female

DRUGS (1)
  1. BEXTRA [Suspect]
     Dosage: (20 MG, 1 IN 1 D)
     Dates: start: 20041022, end: 20041110

REACTIONS (2)
  - NO THERAPEUTIC RESPONSE [None]
  - STEVENS-JOHNSON SYNDROME [None]
